FAERS Safety Report 7971549-X (Version None)
Quarter: 2011Q4

REPORT INFORMATION
  Report Type: 
  Country: None (occurrence: None)
  Receive Date: 20111209
  Receipt Date: 20111209
  Transmission Date: 20120403
  Serious: Yes (Hospitalization)
  Sender: FDA-Public Use
  Company Number: None

PATIENT
  Age: 52 Year
  Sex: Male
  Weight: 60.8 kg

DRUGS (1)
  1. OMEPRAZOLE [Suspect]
     Indication: PANCREATITIS
     Dosage: 40 MG AM PO
     Route: 048
     Dates: start: 20100708, end: 20111120

REACTIONS (2)
  - PANCREATITIS [None]
  - CONDITION AGGRAVATED [None]
